FAERS Safety Report 5809487-0 (Version None)
Quarter: 2008Q3

REPORT INFORMATION
  Report Type: 
  Country: None (occurrence: None)
  Receive Date: 20080709
  Receipt Date: 20080630
  Transmission Date: 20090109
  Serious: Yes (Hospitalization)
  Sender: FDA-Public Use
  Company Number: GXKR2008DE06002

PATIENT
  Sex: Male

DRUGS (6)
  1. RAMIPRIL [Suspect]
     Dosage: 5 MG, QD, ORAL
     Route: 048
     Dates: start: 20070401
  2. ASPIRIN [Concomitant]
  3. ACETYLSALICYLIC ACID SRT [Concomitant]
  4. SIMVASTATIN [Concomitant]
  5. ALLOPURINOL [Concomitant]
  6. RANTUDIL (ACEMETACIN) [Concomitant]

REACTIONS (7)
  - ABDOMINAL PAIN UPPER [None]
  - ASTHENIA [None]
  - DIZZINESS [None]
  - DYSPNOEA [None]
  - FATIGUE [None]
  - HAEMORRHAGE [None]
  - IRON DEFICIENCY ANAEMIA [None]
